FAERS Safety Report 4516620-X (Version None)
Quarter: 2004Q4

REPORT INFORMATION
  Report Type: 
  Country: None (occurrence: None)
  Receive Date: 20041029
  Receipt Date: 20040722
  Transmission Date: 20050328
  Serious: No
  Sender: FDA-Public Use
  Company Number: 2004-118707-NL

PATIENT
  Age: 19 Year
  Sex: Female
  Weight: 72.6 kg

DRUGS (4)
  1. NUVARING [Suspect]
     Indication: CONTRACEPTION
     Dosage: DF DAILY VAGINIAL
     Route: 067
     Dates: start: 20040401, end: 20040720
  2. K-Y JELLY [Concomitant]
  3. PREVACID [Concomitant]
  4. MULTI-VITAMINS [Concomitant]

REACTIONS (2)
  - DYSMENORRHOEA [None]
  - DYSPAREUNIA [None]
